FAERS Safety Report 13188553 (Version 1)
Quarter: 2017Q1

REPORT INFORMATION
  Report Type: Spontaneous
  Country: DE (occurrence: DE)
  Receive Date: 20170206
  Receipt Date: 20170206
  Transmission Date: 20170428
  Serious: Yes (Death)
  Sender: FDA-Public Use
  Company Number: DE-PFIZER INC-2017046647

PATIENT
  Sex: Female

DRUGS (1)
  1. FENTANYL. [Suspect]
     Active Substance: FENTANYL

REACTIONS (1)
  - Death [Fatal]
